FAERS Safety Report 4705858-4 (Version None)
Quarter: 2005Q2

REPORT INFORMATION
  Report Type: 
  Country: None (occurrence: None)
  Receive Date: 20050629
  Receipt Date: 20050518
  Transmission Date: 20051028
  Serious: Yes (Life-Threatening)
  Sender: FDA-Public Use
  Company Number: 05P-163-0293071-00

PATIENT
  Age: 77 Year
  Sex: Female
  Weight: 68.0396 kg

DRUGS (11)
  1. HUMIRA [Suspect]
     Indication: RHEUMATOID ARTHRITIS
     Dosage: 40 MG, 1 IN 14 D, SUBCUTANEOUS
     Route: 058
     Dates: start: 20040301, end: 20040701
  2. METHOTREXATE [Suspect]
     Indication: RHEUMATOID ARTHRITIS
     Dosage: 20 MG, 1 IN 1 WK, PER ORAL
     Route: 048
     Dates: start: 19910901, end: 20050126
  3. DIOVAN [Concomitant]
  4. ALENDRONATE SODIUM [Concomitant]
  5. DIGOXIN [Concomitant]
  6. CARVEDILOL [Concomitant]
  7. GLIPIZIDE [Concomitant]
  8. CALCIUM GLUCONATE [Concomitant]
  9. ERGOCALCIFEROL [Concomitant]
  10. MULTI-VITAMINS [Concomitant]
  11. NOLVADEX [Concomitant]

REACTIONS (6)
  - FOLLICLE CENTRE LYMPHOMA, FOLLICULAR GRADE I, II, III [None]
  - HAEMATOCRIT DECREASED [None]
  - HAEMOGLOBIN DECREASED [None]
  - HELICOBACTER INFECTION [None]
  - MALIGNANT NEOPLASM OF LACRIMAL GLAND [None]
  - RED BLOOD CELL COUNT DECREASED [None]
